FAERS Safety Report 20687929 (Version 2)
Quarter: 2022Q2

REPORT INFORMATION
  Report Type: Spontaneous
  Country: ES (occurrence: ES)
  Receive Date: 20220408
  Receipt Date: 20220429
  Transmission Date: 20220721
  Serious: Yes (Death, Hospitalization, Other)
  Sender: FDA-Public Use
  Company Number: ES-AMGEN-ESPSP2022056547

PATIENT
  Age: 32 Year
  Sex: Male

DRUGS (3)
  1. FILGRASTIM [Suspect]
     Active Substance: FILGRASTIM
     Indication: Prophylaxis
     Dosage: UNK
     Route: 065
  2. CISPLATIN [Concomitant]
     Active Substance: CISPLATIN
     Indication: Tonsil cancer
     Dosage: 100 MILLIGRAM/SQ. METER
  3. PIPERACILLIN AND TAZOBACTAM [Concomitant]
     Active Substance: PIPERACILLIN SODIUM\TAZOBACTAM SODIUM

REACTIONS (10)
  - Death [Fatal]
  - Enteritis [Unknown]
  - Mucosal inflammation [Unknown]
  - Renal impairment [Unknown]
  - Intestinal obstruction [Unknown]
  - Pneumonia [Unknown]
  - Venoocclusive liver disease [Unknown]
  - Gene mutation [Unknown]
  - Hypotension [Unknown]
  - Thrombocytopenia [Unknown]
